FAERS Safety Report 9382545 (Version 4)
Quarter: 2014Q2

REPORT INFORMATION
  Report Type: Spontaneous
  Country: US (occurrence: US)
  Receive Date: 20130703
  Receipt Date: 20140509
  Transmission Date: 20141212
  Serious: Yes (Death, Hospitalization)
  Sender: FDA-Public Use
  Company Number: US-GLAXOSMITHKLINE-A1029318A

PATIENT
  Age: 71 Year
  Sex: Male

DRUGS (1)
  1. AVANDAMET [Suspect]
     Indication: DIABETES MELLITUS
     Route: 048
     Dates: start: 200402, end: 200602

REACTIONS (3)
  - Acute myocardial infarction [Fatal]
  - Cardiac failure congestive [Unknown]
  - Arteriosclerosis [Unknown]
